FAERS Safety Report 4886599-X (Version None)
Quarter: 2006Q1

REPORT INFORMATION
  Report Type: 
  Country: None (occurrence: None)
  Receive Date: 20060119
  Receipt Date: 20060105
  Transmission Date: 20060701
  Serious: Yes (Other)
  Sender: FDA-Public Use
  Company Number: 2005-01830

PATIENT
  Age: 61 Year
  Sex: Male

DRUGS (2)
  1. VELCADE [Suspect]
     Indication: MULTIPLE MYELOMA
     Dosage: 2.60 MG, INTRAVENOUS
     Route: 042
     Dates: start: 20050201
  2. VELCADE [Suspect]
     Indication: MULTIPLE MYELOMA
     Dosage: 2.60 MG, INTRAVENOUS
     Route: 042
     Dates: start: 20050601

REACTIONS (3)
  - BLEPHARITIS [None]
  - KERATITIS [None]
  - SURGERY [None]
